FAERS Safety Report 10936328 (Version 1)
Quarter: 2015Q1

REPORT INFORMATION
  Report Type: Spontaneous
  Country: US (occurrence: None)
  Receive Date: 20150320
  Receipt Date: 20150320
  Transmission Date: 20150721
  Serious: No
  Sender: FDA-Public Use
  Company Number: None

PATIENT
  Age: 60 Year
  Sex: Male

DRUGS (1)
  1. SOOLANTRA [Suspect]
     Active Substance: IVERMECTIN

REACTIONS (2)
  - Rash erythematous [None]
  - Irritability [None]

NARRATIVE: CASE EVENT DATE: 20150311
